FAERS Safety Report 21401365 (Version 1)
Quarter: 2022Q4

REPORT INFORMATION
  Report Type: Spontaneous
  Country: US (occurrence: US)
  Receive Date: 20221003
  Receipt Date: 20221003
  Transmission Date: 20230113
  Serious: No
  Sender: FDA-Public Use
  Company Number: US-AUROBINDO-AUR-APL-2022-001236

PATIENT
  Sex: Female
  Weight: 48.39 kg

DRUGS (1)
  1. SUMATRIPTAN [Suspect]
     Active Substance: SUMATRIPTAN
     Indication: Migraine
     Dosage: 1 DOSAGE FORM (TAKE 1 TABLET BY MOUTH ONCE,REPEAT IN 2 HRS AND DO NOT EXCEED 2 DOSES IN 24 HRS), TWO
     Route: 048

REACTIONS (2)
  - Product blister packaging issue [Unknown]
  - Product storage error [Unknown]
